FAERS Safety Report 17533120 (Version 4)
Quarter: 2021Q4

REPORT INFORMATION
  Report Type: Spontaneous
  Country: US (occurrence: US)
  Receive Date: 20200312
  Receipt Date: 20211203
  Transmission Date: 20220303
  Serious: Yes (Other)
  Sender: FDA-Public Use
  Company Number: US-PFIZER INC-2020108003

PATIENT
  Age: 75 Year
  Sex: Male
  Weight: 72.57 kg

DRUGS (3)
  1. GABAPENTIN [Suspect]
     Active Substance: GABAPENTIN
     Indication: Neuropathy peripheral
     Dosage: 900 MG, 2X/DAY [3 DF (300 MG), TWICE DAILY]
  2. GABAPENTIN [Suspect]
     Active Substance: GABAPENTIN
     Indication: Burning sensation
     Dosage: 300 MG, 1X/DAY
  3. GABAPENTIN [Suspect]
     Active Substance: GABAPENTIN
     Dosage: 300 MG, 2X/DAY
     Route: 048

REACTIONS (8)
  - Narcolepsy [Unknown]
  - Somnolence [Unknown]
  - Fatigue [Unknown]
  - Benign prostatic hyperplasia [Unknown]
  - Urge incontinence [Unknown]
  - Blood urine present [Unknown]
  - Off label use [Unknown]
  - Intentional product use issue [Unknown]
